FAERS Safety Report 24209326 (Version 1)
Quarter: 2024Q3

REPORT INFORMATION
  Report Type: Spontaneous
  Country: CA (occurrence: CA)
  Receive Date: 20240814
  Receipt Date: 20240814
  Transmission Date: 20241017
  Serious: Yes (Death, Hospitalization, Other)
  Sender: PFIZER
  Company Number: CA-PFIZER INC-PV202300163072

PATIENT
  Age: 78 Year
  Sex: Female
  Weight: 62.5 kg

DRUGS (33)
  1. ZIRABEV [Suspect]
     Active Substance: BEVACIZUMAB-BVZR
     Indication: Ovarian cancer
     Dosage: 625 MG, (10 MG/KG), Q2WEEKS
     Route: 042
     Dates: start: 20231017
  2. ZIRABEV [Suspect]
     Active Substance: BEVACIZUMAB-BVZR
     Dosage: 625 MG, (10 MG/KG), Q2WEEKS
     Route: 042
     Dates: start: 20231017
  3. ZIRABEV [Suspect]
     Active Substance: BEVACIZUMAB-BVZR
     Dosage: 625 MG
     Route: 042
     Dates: start: 20231030
  4. ZIRABEV [Suspect]
     Active Substance: BEVACIZUMAB-BVZR
     Dosage: 625 MG
     Route: 042
     Dates: start: 20231030
  5. ZIRABEV [Suspect]
     Active Substance: BEVACIZUMAB-BVZR
     Dosage: 600 MG EVERY 2 WEEKS (RECEIVED 625 MG)
     Route: 042
     Dates: start: 20231113
  6. ZIRABEV [Suspect]
     Active Substance: BEVACIZUMAB-BVZR
     Dosage: 600 MG EVERY 2 WEEKS ( RECEIVED 625 MG)
     Route: 042
     Dates: start: 20231113
  7. ZIRABEV [Suspect]
     Active Substance: BEVACIZUMAB-BVZR
     Dosage: 625 MG
     Route: 042
     Dates: start: 20231127
  8. ZIRABEV [Suspect]
     Active Substance: BEVACIZUMAB-BVZR
     Dosage: 625 MG
     Route: 042
     Dates: start: 20231127
  9. ZIRABEV [Suspect]
     Active Substance: BEVACIZUMAB-BVZR
     Dosage: 625 MG, EVERY  2 WEEKS
     Route: 042
     Dates: start: 20231212
  10. ZIRABEV [Suspect]
     Active Substance: BEVACIZUMAB-BVZR
     Dosage: 625 MG, EVERY  2 WEEKS
     Route: 042
     Dates: start: 20231212
  11. ZIRABEV [Suspect]
     Active Substance: BEVACIZUMAB-BVZR
     Dosage: 625 MG, EVERY  2 WEEKS
     Route: 042
     Dates: start: 20231228
  12. ZIRABEV [Suspect]
     Active Substance: BEVACIZUMAB-BVZR
     Dosage: 625 MG, EVERY  2 WEEKS
     Route: 042
     Dates: start: 20231228
  13. ZIRABEV [Suspect]
     Active Substance: BEVACIZUMAB-BVZR
     Dosage: 625 MG, EVERY 2 WEEKS
     Route: 042
     Dates: start: 20240115
  14. ZIRABEV [Suspect]
     Active Substance: BEVACIZUMAB-BVZR
     Dosage: 625 MG, EVERY 2 WEEKS
     Route: 042
     Dates: start: 20240115
  15. ZIRABEV [Suspect]
     Active Substance: BEVACIZUMAB-BVZR
     Dosage: 625 MG, EVERY 2 WEEKS
     Route: 042
     Dates: start: 20240129
  16. ZIRABEV [Suspect]
     Active Substance: BEVACIZUMAB-BVZR
     Dosage: 625 MG, EVERY 2 WEEKS
     Route: 042
     Dates: start: 20240129
  17. ZIRABEV [Suspect]
     Active Substance: BEVACIZUMAB-BVZR
     Dosage: 625 MG, EVERY 2 WEEKS
     Route: 042
     Dates: start: 20240212
  18. ZIRABEV [Suspect]
     Active Substance: BEVACIZUMAB-BVZR
     Dosage: 625 MG, EVERY 2 WEEKS
     Route: 042
     Dates: start: 20240226
  19. ZIRABEV [Suspect]
     Active Substance: BEVACIZUMAB-BVZR
     Dosage: 625 MG, EVERY 2 WEEKS
     Route: 042
     Dates: start: 20240226
  20. ZIRABEV [Suspect]
     Active Substance: BEVACIZUMAB-BVZR
     Dosage: 625 MG, EVERY 2 WEEKS
     Route: 042
     Dates: start: 20240311
  21. ZIRABEV [Suspect]
     Active Substance: BEVACIZUMAB-BVZR
     Dosage: 625 MG, EVERY 2 WEEKS
     Route: 042
     Dates: start: 20240311
  22. ZIRABEV [Suspect]
     Active Substance: BEVACIZUMAB-BVZR
     Dosage: 625 MG, EVERY 2 WEEKS
     Route: 042
     Dates: start: 20240408
  23. ZIRABEV [Suspect]
     Active Substance: BEVACIZUMAB-BVZR
     Dosage: 625 MG, EVERY 2 WEEKS
     Route: 042
     Dates: start: 20240408
  24. ZIRABEV [Suspect]
     Active Substance: BEVACIZUMAB-BVZR
     Dosage: 625 MG, EVERY 2 WEEKS
     Route: 042
     Dates: start: 20240506
  25. ZIRABEV [Suspect]
     Active Substance: BEVACIZUMAB-BVZR
     Dosage: 625 MG, EVERY 2 WEEKS
     Route: 042
     Dates: start: 20240506
  26. ZIRABEV [Suspect]
     Active Substance: BEVACIZUMAB-BVZR
     Dosage: 625 MG, 2 WEEKS
     Route: 042
     Dates: start: 20240603
  27. ZIRABEV [Suspect]
     Active Substance: BEVACIZUMAB-BVZR
     Dosage: 625 MG, 2 WEEKS
     Route: 042
     Dates: start: 20240603
  28. ZIRABEV [Suspect]
     Active Substance: BEVACIZUMAB-BVZR
     Dosage: 625 MG, 2 WEEKS
     Route: 042
     Dates: start: 20240603
  29. ZIRABEV [Suspect]
     Active Substance: BEVACIZUMAB-BVZR
     Dosage: 625 MG, 2 WEEKS
     Route: 042
     Dates: start: 20240617
  30. ZIRABEV [Suspect]
     Active Substance: BEVACIZUMAB-BVZR
     Dosage: 625 MG, 2 WEEKS
     Route: 042
     Dates: start: 20240617
  31. DOXORUBICIN HYDROCHLORIDE [Concomitant]
     Active Substance: DOXORUBICIN HYDROCHLORIDE
     Indication: Ovarian cancer
     Dosage: UNK
  32. BENADRYL [Concomitant]
     Active Substance: DIPHENHYDRAMINE HYDROCHLORIDE
     Indication: Premedication
     Dosage: 50 MG
     Route: 048
  33. TYLENOL [Concomitant]
     Active Substance: ACETAMINOPHEN
     Indication: Premedication
     Dosage: 650 MG
     Route: 048

REACTIONS (8)
  - Death [Fatal]
  - Infection [Unknown]
  - Blood pressure systolic increased [Unknown]
  - Hypertension [Unknown]
  - Blood pressure diastolic decreased [Recovered/Resolved]
  - Bronchitis [Unknown]
  - Nasopharyngitis [Unknown]
  - Blood pressure fluctuation [Unknown]

NARRATIVE: CASE EVENT DATE: 20231017
